FAERS Safety Report 10004807 (Version 2)
Quarter: 2014Q2

REPORT INFORMATION
  Report Type: Spontaneous
  Country: RU (occurrence: RU)
  Receive Date: 20140312
  Receipt Date: 20140422
  Transmission Date: 20141212
  Serious: Yes (Hospitalization)
  Sender: FDA-Public Use
  Company Number: RU-VIIV HEALTHCARE LIMITED-B0975792A

PATIENT
  Sex: Female

DRUGS (6)
  1. EPIVIR [Suspect]
     Indication: HIV INFECTION
     Route: 065
  2. VIDEX [Suspect]
     Indication: HIV INFECTION
     Route: 065
  3. ATAZANAVIR [Suspect]
     Indication: HIV INFECTION
     Route: 065
  4. URSODEOXYCHOLIC ACID [Concomitant]
     Dosage: 4TAB PER DAY
  5. B VITAMINS [Concomitant]
  6. HERBAL MEDICINE [Concomitant]

REACTIONS (3)
  - Hepatitis C [Not Recovered/Not Resolved]
  - Hepatic pain [Not Recovered/Not Resolved]
  - Dysgeusia [Unknown]
